FAERS Safety Report 15266082 (Version 1)
Quarter: 2018Q3

REPORT INFORMATION
  Report Type: Spontaneous
  Country: US (occurrence: US)
  Receive Date: 20180810
  Receipt Date: 20180810
  Transmission Date: 20181010
  Serious: Yes (Hospitalization)
  Sender: FDA-Public Use
  Company Number: US-ALKERMES INC.-ALK-2018-004182

PATIENT

DRUGS (6)
  1. VIVITROL [Suspect]
     Active Substance: NALTREXONE
     Indication: DRUG DEPENDENCE
     Dosage: 380 MG, QMO
     Route: 030
  2. NALTREXONE [Concomitant]
     Active Substance: NALTREXONE
     Indication: DETOXIFICATION
     Dosage: 50 MG, QD
     Route: 048
  3. BUPRENORPHINE. [Concomitant]
     Active Substance: BUPRENORPHINE
     Indication: DETOXIFICATION
     Dosage: 2 MG, QD
     Route: 065
  4. BUPRENORPHINE. [Concomitant]
     Active Substance: BUPRENORPHINE
     Dosage: 4 MG, ONE TIME DOSE
     Route: 065
  5. NALTREXONE [Concomitant]
     Active Substance: NALTREXONE
     Dosage: 0.25 MG, QD
     Route: 048
  6. OTHER THERAPEUTIC PRODUCTS [Concomitant]
     Active Substance: UNSPECIFIED INGREDIENT
     Indication: DRUG WITHDRAWAL SYNDROME
     Dosage: UNK UNK, PRN
     Route: 065

REACTIONS (1)
  - Psychomotor hyperactivity [Recovered/Resolved]
